FAERS Safety Report 26189730 (Version 1)
Quarter: 2025Q4

REPORT INFORMATION
  Report Type: Spontaneous
  Country: US (occurrence: None)
  Receive Date: 20251223
  Receipt Date: 20251223
  Transmission Date: 20260118
  Serious: Yes (Hospitalization)
  Sender: NORMON
  Company Number: US-MLMSERVICE-20251210-PI745490-00291-1

PATIENT
  Age: 64 Year
  Sex: Male
  Weight: 61.7 kg

DRUGS (12)
  1. CRESTOR [Suspect]
     Active Substance: ROSUVASTATIN CALCIUM
     Indication: Coronary artery disease
     Dates: start: 20230530, end: 20231016
  2. VITAMIN C [Concomitant]
     Active Substance: ASCORBIC ACID
  3. CARVEDILOL [Concomitant]
     Active Substance: CARVEDILOL
     Dosage: 3.125 MG TWICE DAILY
  4. DIAZEPAM [Concomitant]
     Active Substance: DIAZEPAM
  5. BUDESONIDE [Concomitant]
     Active Substance: BUDESONIDE
  6. FISH OIL [Concomitant]
     Active Substance: FISH OIL
  7. FLUTICASONE [Concomitant]
     Active Substance: FLUTICASONE
     Dosage: INHALER
  8. GABAPENTIN [Concomitant]
     Active Substance: GABAPENTIN
  9. OLOPATADINE [Concomitant]
     Active Substance: OLOPATADINE
     Dosage: OPHTHALMIC SOLUTION 0.1% TWICE A DAY
  10. PANTOPRAZOLE [Suspect]
     Active Substance: PANTOPRAZOLE
     Dosage: HE HAD BEEN ON PROTON PUMP INHIBITOR (PPI) THERAPY FOR MORE THAN FIVE YEARS
  11. RIMEGEPANT [Concomitant]
     Active Substance: RIMEGEPANT
     Dosage: 75 MG EVERY OTHER DAY
  12. ZINC SULFATE [Concomitant]
     Active Substance: ZINC SULFATE

REACTIONS (1)
  - Acute kidney injury [Recovered/Resolved]

NARRATIVE: CASE EVENT DATE: 20240101
